FAERS Safety Report 7460922-4 (Version None)
Quarter: 2011Q2

REPORT INFORMATION
  Report Type: 
  Country: None (occurrence: None)
  Receive Date: 20110505
  Receipt Date: 20110414
  Transmission Date: 20111010
  Serious: Yes (Hospitalization)
  Sender: FDA-Public Use
  Company Number: US-PFIZER INC-2011082668

PATIENT
  Sex: Female
  Weight: 55.329 kg

DRUGS (3)
  1. CELEBREX [Suspect]
     Indication: PAIN
     Dosage: UNK
     Dates: start: 20101101, end: 20101127
  2. RISEDRONIC ACID [Concomitant]
     Indication: OSTEOARTHRITIS
     Dosage: UNK, 1X/MONTH
  3. RISEDRONIC ACID [Concomitant]
     Indication: OSTEOPOROSIS

REACTIONS (1)
  - LUMBAR VERTEBRAL FRACTURE [None]
